FAERS Safety Report 19000053 (Version 1)
Quarter: 2021Q1

REPORT INFORMATION
  Report Type: Spontaneous
  Country: CH (occurrence: CH)
  Receive Date: 20210312
  Receipt Date: 20210312
  Transmission Date: 20210420
  Serious: Yes (Hospitalization, Other)
  Sender: FDA-Public Use
  Company Number: CH-ABBVIE-21K-151-3810319-00

PATIENT
  Age: 73 Year
  Sex: Female

DRUGS (1)
  1. VENCLYXTO [Suspect]
     Active Substance: VENETOCLAX
     Indication: PRODUCT USED FOR UNKNOWN INDICATION
     Route: 048
     Dates: start: 20200316

REACTIONS (7)
  - COVID-19 [Recovered/Resolved]
  - Pulmonary embolism [Recovered/Resolved]
  - Dermatitis [Unknown]
  - COVID-19 pneumonia [Recovered/Resolved]
  - Hypoxia [Unknown]
  - Oedema [Unknown]
  - Infection [Unknown]

NARRATIVE: CASE EVENT DATE: 20200818
